FAERS Safety Report 9948566 (Version 1)
Quarter: 2014Q1

REPORT INFORMATION
  Report Type: Report from Study
  Country: US (occurrence: US)
  Receive Date: 20140303
  Receipt Date: 20140303
  Transmission Date: 20141002
  Serious: No
  Sender: FDA-Public Use
  Company Number: US-ABBVIE-13P-163-1058216-00

PATIENT
  Age: 30 Year
  Sex: Male

DRUGS (2)
  1. HUMIRA [Suspect]
     Indication: COLITIS ULCERATIVE
     Dosage: 160 MG ON 07 JAN 2013 AND 80 MG ON 21 JAN 2013
     Dates: start: 20130107, end: 20130107
  2. HUMIRA [Suspect]
     Dates: start: 20130121, end: 20130121

REACTIONS (1)
  - Herpes zoster [Recovered/Resolved]
